FAERS Safety Report 22258495 (Version 1)
Quarter: 2023Q2

REPORT INFORMATION
  Report Type: Spontaneous
  Country: US (occurrence: US)
  Receive Date: 20230427
  Receipt Date: 20230427
  Transmission Date: 20230721
  Serious: Yes (Life-Threatening, Hospitalization)
  Sender: FDA-Public Use
  Company Number: US-drreddys-SPO/USA/23/0163968

PATIENT
  Age: 69 Year
  Sex: Male

DRUGS (1)
  1. FLUOROURACIL [Suspect]
     Active Substance: FLUOROURACIL
     Indication: Product used for unknown indication
     Dosage: 0.0005
     Dates: start: 20230110, end: 20230129

REACTIONS (2)
  - Blood sodium decreased [Unknown]
  - Erythema [Unknown]

NARRATIVE: CASE EVENT DATE: 20230101
